FAERS Safety Report 7681239-9 (Version None)
Quarter: 2011Q3

REPORT INFORMATION
  Report Type: 
  Country: None (occurrence: None)
  Receive Date: 20110812
  Receipt Date: 20110805
  Transmission Date: 20111222
  Serious: Yes (Other)
  Sender: FDA-Public Use
  Company Number: CA-TEVA-295035USA

PATIENT
  Sex: Female

DRUGS (1)
  1. COPAXONE [Suspect]
     Indication: MULTIPLE SCLEROSIS
     Route: 058
     Dates: start: 20110804, end: 20110804

REACTIONS (5)
  - HYPERHIDROSIS [None]
  - BLOOD PRESSURE IMMEASURABLE [None]
  - SYNCOPE [None]
  - LOSS OF CONSCIOUSNESS [None]
  - PULSE ABSENT [None]
